FAERS Safety Report 17565402 (Version 1)
Quarter: 2020Q1

REPORT INFORMATION
  Report Type: Spontaneous
  Country: US (occurrence: US)
  Receive Date: 20200320
  Receipt Date: 20200320
  Transmission Date: 20200409
  Serious: No
  Sender: FDA-Public Use
  Company Number: US-PFIZER INC-2020010120

PATIENT
  Age: 73 Year
  Sex: Female

DRUGS (2)
  1. XELJANZ [Suspect]
     Active Substance: TOFACITINIB CITRATE
     Dosage: 5 MG, UNK
     Dates: start: 20200109, end: 20200304
  2. XELJANZ [Suspect]
     Active Substance: TOFACITINIB CITRATE
     Indication: PYODERMA GANGRENOSUM
     Dosage: 5 MG, UNK
     Dates: start: 20200108

REACTIONS (4)
  - Diarrhoea [Unknown]
  - Off label use [Unknown]
  - Rhinorrhoea [Unknown]
  - Product use in unapproved indication [Unknown]

NARRATIVE: CASE EVENT DATE: 20200108
